APPROVED DRUG PRODUCT: FOSINOPRIL SODIUM AND HYDROCHLOROTHIAZIDE
Active Ingredient: FOSINOPRIL SODIUM; HYDROCHLOROTHIAZIDE
Strength: 20MG;12.5MG
Dosage Form/Route: TABLET;ORAL
Application: A079245 | Product #002 | TE Code: AB
Applicant: AUROBINDO PHARMA LTD
Approved: Jul 9, 2009 | RLD: No | RS: Yes | Type: RX